FAERS Safety Report 25497985 (Version 1)
Quarter: 2025Q3

REPORT INFORMATION
  Report Type: Spontaneous
  Country: US (occurrence: US)
  Receive Date: 20250701
  Receipt Date: 20250701
  Transmission Date: 20251021
  Serious: Yes (Other)
  Sender: SANOFI AVENTIS
  Company Number: US-SA-2025SA183942

PATIENT
  Age: 54 Year
  Sex: Female
  Weight: 86.36 kg

DRUGS (14)
  1. DUPIXENT [Suspect]
     Active Substance: DUPILUMAB
     Indication: Asthma
     Dosage: 300 MG, QOW
     Route: 058
  2. LACTOBACILLUS ACIDOPHILUS [Suspect]
     Active Substance: LACTOBACILLUS ACIDOPHILUS
     Route: 065
     Dates: start: 202503
  3. FERROUS GLUCONATE [Concomitant]
     Active Substance: FERROUS GLUCONATE
  4. MONTELUKAST SODIUM [Concomitant]
     Active Substance: MONTELUKAST SODIUM
  5. SODIUM CHLORIDE [Concomitant]
     Active Substance: SODIUM CHLORIDE
  6. ASENAPINE MALEATE [Concomitant]
     Active Substance: ASENAPINE MALEATE
  7. SYMBICORT [Concomitant]
     Active Substance: BUDESONIDE\FORMOTEROL FUMARATE DIHYDRATE
  8. TYLENOL [Concomitant]
     Active Substance: ACETAMINOPHEN
  9. LORATADINE [Concomitant]
     Active Substance: LORATADINE
  10. MUCINEX [Concomitant]
     Active Substance: GUAIFENESIN
  11. FAMOTIDINE [Concomitant]
     Active Substance: FAMOTIDINE
  12. CALCIUM PLUS VITAMIN D3 [CALCIUM CARBONATE;COLECALCIFEROL] [Concomitant]
  13. ALBUTEROL SULFATE [Concomitant]
     Active Substance: ALBUTEROL SULFATE
  14. BUPROPION [Concomitant]
     Active Substance: BUPROPION

REACTIONS (4)
  - Crohn^s disease [Unknown]
  - Abdominal pain upper [Unknown]
  - Flatulence [Not Recovered/Not Resolved]
  - Diarrhoea [Unknown]

NARRATIVE: CASE EVENT DATE: 20250101
